FAERS Safety Report 4586811-0 (Version None)
Quarter: 2005Q1

REPORT INFORMATION
  Report Type: 
  Country: None (occurrence: None)
  Receive Date: 20050218
  Receipt Date: 20050211
  Transmission Date: 20050727
  Serious: Yes (Hospitalization)
  Sender: FDA-Public Use
  Company Number: 200511294GDDC

PATIENT
  Age: 85 Year
  Sex: Male

DRUGS (6)
  1. NATRILIX [Suspect]
     Indication: ESSENTIAL HYPERTENSION
     Route: 048
     Dates: end: 20041025
  2. ATACAND [Suspect]
     Indication: ESSENTIAL HYPERTENSION
     Dosage: DOSE: 1 DOSAGE FORM
     Route: 048
     Dates: end: 20041025
  3. TRAMAL [Concomitant]
     Dates: end: 20041025
  4. MOBIC [Concomitant]
  5. FOSAMAX [Concomitant]
  6. OROXINE [Concomitant]

REACTIONS (5)
  - CONFUSIONAL STATE [None]
  - DISORIENTATION [None]
  - FALL [None]
  - HYPONATRAEMIA [None]
  - MOBILITY DECREASED [None]
